FAERS Safety Report 13116863 (Version 13)
Quarter: 2020Q4

REPORT INFORMATION
  Report Type: Spontaneous
  Country: US (occurrence: US)
  Receive Date: 20170116
  Receipt Date: 20201223
  Transmission Date: 20210113
  Serious: Yes (Death, Hospitalization, Other)
  Sender: FDA-Public Use
  Company Number: US-PFIZER INC-2017014026

PATIENT
  Age: 94 Year
  Sex: Male
  Weight: 65.76 kg

DRUGS (16)
  1. CARVEDILOL. [Concomitant]
     Active Substance: CARVEDILOL
     Indication: CARDIAC FAILURE CONGESTIVE
     Dosage: 6.25 MG, 2X/DAY
     Route: 048
     Dates: start: 200605
  2. WARFARIN [Concomitant]
     Active Substance: WARFARIN
     Indication: ATRIAL FIBRILLATION
     Dosage: UNK
     Dates: start: 2006
  3. GENOTROPIN MQ [Suspect]
     Active Substance: SOMATROPIN
     Dosage: 0.8 MG, DAILY
     Dates: start: 20160421
  4. HYDROCORTISONE. [Concomitant]
     Active Substance: HYDROCORTISONE
     Indication: HORMONE LEVEL ABNORMAL
     Dosage: UNK
     Dates: start: 2010
  5. TESTOSTERONE. [Concomitant]
     Active Substance: TESTOSTERONE
     Indication: HORMONE LEVEL ABNORMAL
  6. FUROSEMIDE. [Concomitant]
     Active Substance: FUROSEMIDE
     Indication: CARDIAC FAILURE CONGESTIVE
     Dosage: 40 MG, DAILY
     Route: 048
     Dates: start: 2006
  7. ALLOPURINOL. [Concomitant]
     Active Substance: ALLOPURINOL
     Indication: GOUT
     Dosage: 100 MG, DAILY
     Route: 048
  8. VITAMIN D /00107901/ [Concomitant]
     Active Substance: ERGOCALCIFEROL
     Indication: ASTHENIA
     Dosage: 1000 IU, UNK
  9. LEVOTHYROXINE. [Concomitant]
     Active Substance: LEVOTHYROXINE
     Indication: PITUITARY TUMOUR
     Dosage: 75 UG, 1X/DAY (ONCE EVERY MORNING SUPPOSEDLY AN HOUR BEFORE BREAKFAST)
     Route: 048
     Dates: start: 2004
  10. HYDROCORTISONE. [Concomitant]
     Active Substance: HYDROCORTISONE
     Indication: ASTHENIA
     Dosage: 10 MG, AS NEEDED (1 TABLET TAKEN BY MOUTH IN THE MORNING, ONE TABLET TAKEN BYMOUTH IN THE EVENING I)
     Route: 048
  11. GENOTROPIN MQ [Suspect]
     Active Substance: SOMATROPIN
     Indication: PITUITARY TUMOUR
     Dosage: 0.8 MG, 1X/DAY
     Dates: start: 2004
  12. FUROSEMIDE. [Concomitant]
     Active Substance: FUROSEMIDE
     Dosage: 80 MG, UNK (2 TABLETS TAKEN THAT DAY IF WEIGHT HAS INCREASED BY 2 LBS IN 24 HOURS)
  13. POTASSIUM [Concomitant]
     Active Substance: POTASSIUM
     Indication: SUPPLEMENTATION THERAPY
     Dosage: 10 MEQ, 2X/DAY
     Route: 048
     Dates: start: 2006
  14. POTASSIUM [Concomitant]
     Active Substance: POTASSIUM
     Indication: CARDIAC FAILURE CONGESTIVE
  15. TESTOSTERONE. [Concomitant]
     Active Substance: TESTOSTERONE
     Indication: PITUITARY TUMOUR
     Dosage: UNK, MONTHLY (50 - SHOT GIVEN AT DOCTORS OFFICE ONCE A MONTH)
     Dates: start: 2004
  16. VITAMIN D /00107901/ [Concomitant]
     Active Substance: ERGOCALCIFEROL
     Dosage: 2000 IU, DAILY
     Route: 048

REACTIONS (11)
  - Blindness unilateral [Not Recovered/Not Resolved]
  - Hypersomnia [Unknown]
  - Deafness [Unknown]
  - Cardiac arrest [Fatal]
  - Respiratory arrest [Fatal]
  - Confusional state [Unknown]
  - Localised infection [Not Recovered/Not Resolved]
  - Condition aggravated [Not Recovered/Not Resolved]
  - Depression [Recovered/Resolved]
  - Asthenia [Unknown]
  - Malaise [Unknown]

NARRATIVE: CASE EVENT DATE: 201801
